FAERS Safety Report 4726715-3 (Version None)
Quarter: 2005Q3

REPORT INFORMATION
  Report Type: 
  Country: None (occurrence: None)
  Receive Date: 20050725
  Receipt Date: 20050228
  Transmission Date: 20060218
  Serious: No
  Sender: FDA-Public Use
  Company Number: USA050188457

PATIENT
  Age: 6 Year
  Sex: Female
  Weight: 26 kg

DRUGS (4)
  1. STRATTERA [Suspect]
     Indication: ATTENTION DEFICIT/HYPERACTIVITY DISORDER
     Dosage: 40 MG DAY
     Dates: start: 20030801, end: 20041201
  2. ADDERALL XR 15 [Concomitant]
  3. CONCERTA [Concomitant]
  4. RITALIN [Concomitant]

REACTIONS (2)
  - GROWTH RETARDATION [None]
  - PRESCRIBED OVERDOSE [None]
